FAERS Safety Report 5472458-0 (Version None)
Quarter: 2007Q3

REPORT INFORMATION
  Report Type: 
  Country: None (occurrence: None)
  Receive Date: 20070926
  Receipt Date: 20070911
  Transmission Date: 20080115
  Serious: Yes (Congenital Anomaly, Other)
  Sender: FDA-Public Use
  Company Number: 100#03#2007-03593

PATIENT

DRUGS (1)
  1. ONDANSETRON [Suspect]
     Indication: DRUG EXPOSURE DURING PREGNANCY
     Dosage: TRANSPLACENTAL
     Route: 064
     Dates: start: 20060115, end: 20060701

REACTIONS (2)
  - DRUG EXPOSURE DURING PREGNANCY [None]
  - MICROCEPHALY [None]
